FAERS Safety Report 7875414-8 (Version None)
Quarter: 2011Q4

REPORT INFORMATION
  Report Type: 
  Country: None (occurrence: None)
  Receive Date: 20111031
  Receipt Date: 20111020
  Transmission Date: 20120403
  Serious: Yes (Hospitalization, Other)
  Sender: FDA-Public Use
  Company Number: PHEH2011US06890

PATIENT
  Sex: Female

DRUGS (3)
  1. NORVASC [Suspect]
     Dosage: 5 MG, 1XDAY
  2. LISINOPRIL [Suspect]
     Dosage: UNK UKN, UNK
  3. TEKTURNA [Suspect]
     Dosage: 150 MG, 2XDAY

REACTIONS (3)
  - SWELLING FACE [None]
  - HYPERTENSION [None]
  - SWOLLEN TONGUE [None]
